FAERS Safety Report 5741194-5 (Version None)
Quarter: 2008Q2

REPORT INFORMATION
  Report Type: 
  Country: None (occurrence: None)
  Receive Date: 20080514
  Receipt Date: 20080430
  Transmission Date: 20081010
  Serious: Yes (Other)
  Sender: FDA-Public Use
  Company Number: DSU-2008-00637

PATIENT
  Sex: Female

DRUGS (5)
  1. AZOR [Suspect]
     Indication: HYPERTENSION
     Dosage: 5/40 MG (QD), PER ORAL
     Route: 048
     Dates: start: 20080201
  2. VICODIN [Suspect]
     Indication: ARTHRITIS
     Dosage: PER ORAL
     Route: 048
  3. VICODIN [Suspect]
     Indication: PAIN
     Dosage: PER ORAL
     Route: 048
  4. VALIUM [Suspect]
     Indication: ARTHRITIS
     Dosage: PER ORAL
     Route: 048
  5. VALIUM [Suspect]
     Indication: PAIN
     Dosage: PER ORAL
     Route: 048

REACTIONS (5)
  - CHEST PAIN [None]
  - FEELING ABNORMAL [None]
  - HYPOAESTHESIA [None]
  - STRESS [None]
  - THERAPEUTIC RESPONSE UNEXPECTED [None]
